FAERS Safety Report 5348433-3 (Version None)
Quarter: 2007Q2

REPORT INFORMATION
  Report Type: 
  Country: None (occurrence: None)
  Receive Date: 20070606
  Receipt Date: 20070525
  Transmission Date: 20071010
  Serious: Yes (Other)
  Sender: FDA-Public Use
  Company Number: US-PFIZER INC-2007035149

PATIENT
  Sex: Male

DRUGS (2)
  1. LYRICA [Suspect]
     Indication: MUSCLE SPASMS
  2. LYRICA [Suspect]
     Indication: FORMICATION

REACTIONS (2)
  - DISABILITY [None]
  - LUNG NEOPLASM MALIGNANT [None]
